FAERS Safety Report 8253837-5 (Version None)
Quarter: 2012Q2

REPORT INFORMATION
  Report Type: 
  Country: None (occurrence: None)
  Receive Date: 20120402
  Receipt Date: 20120314
  Transmission Date: 20120825
  Serious: No
  Sender: FDA-Public Use
  Company Number: US-AMGEN-USASP2012016709

PATIENT
  Age: 55 Year
  Sex: Female

DRUGS (2)
  1. ENBREL [Suspect]
     Indication: RHEUMATOID ARTHRITIS
     Dosage: 50 MG, QWK
     Dates: start: 20020201, end: 20120206
  2. PLAQUENIL [Concomitant]
     Dosage: 2 MG, QWK
     Dates: start: 20120201

REACTIONS (12)
  - RHEUMATOID ARTHRITIS [None]
  - DRY SKIN [None]
  - SCAB [None]
  - VOLUME BLOOD DECREASED [None]
  - WHITE BLOOD CELL COUNT DECREASED [None]
  - SKIN EXFOLIATION [None]
  - EPISTAXIS [None]
  - BONE DENSITY DECREASED [None]
  - ERYTHEMA [None]
  - NODULE [None]
  - SINUSITIS [None]
  - INJECTION SITE PAIN [None]
